FAERS Safety Report 7229350-0 (Version None)
Quarter: 2011Q1

REPORT INFORMATION
  Report Type: 
  Country: None (occurrence: None)
  Receive Date: 20110117
  Receipt Date: 20110103
  Transmission Date: 20110831
  Serious: Yes (Hospitalization, Congenital Anomaly)
  Sender: FDA-Public Use
  Company Number: A0687254A

PATIENT
  Sex: Male
  Weight: 3.2 kg

DRUGS (4)
  1. VITAMIN AND MINERAL PRENATAL SUPPLEMENT W/ FOLIC ACID CAP [Concomitant]
  2. ZOLOFT [Concomitant]
  3. PAXIL [Suspect]
     Indication: ANXIETY
     Dates: start: 20010101
  4. INSULIN [Concomitant]

REACTIONS (7)
  - CHORDEE [None]
  - LUNG DISORDER [None]
  - CARDIOMEGALY [None]
  - HYPOSPADIAS [None]
  - DRUG EXPOSURE DURING PREGNANCY [None]
  - NEONATAL TACHYPNOEA [None]
  - ATRIAL SEPTAL DEFECT [None]
